FAERS Safety Report 18840637 (Version 1)
Quarter: 2021Q1

REPORT INFORMATION
  Report Type: Report from Study
  Country: DE (occurrence: DE)
  Receive Date: 20210204
  Receipt Date: 20210204
  Transmission Date: 20210419
  Serious: Yes (Other)
  Sender: FDA-Public Use
  Company Number: DE-JNJFOC-20210205488

PATIENT
  Sex: Female
  Weight: 70 kg

DRUGS (1)
  1. RIVAROXABAN [Suspect]
     Active Substance: RIVAROXABAN
     Indication: PRODUCT USED FOR UNKNOWN INDICATION
     Route: 048

REACTIONS (3)
  - Cerebral haemorrhage [Unknown]
  - Intraventricular haemorrhage [Unknown]
  - Right hemisphere deficit syndrome [Unknown]

NARRATIVE: CASE EVENT DATE: 20210114
